FAERS Safety Report 20040621 (Version 1)
Quarter: 2021Q4

REPORT INFORMATION
  Report Type: Spontaneous
  Country: US (occurrence: None)
  Receive Date: 20211105
  Receipt Date: 20211105
  Transmission Date: 20220303
  Serious: Yes (Death)
  Sender: FDA-Public Use
  Company Number: None

PATIENT
  Age: 71 Year
  Sex: Male
  Weight: 68.95 kg

DRUGS (3)
  1. ATAZANAVIR [Suspect]
     Active Substance: ATAZANAVIR
  2. ISENTRESS [Suspect]
     Active Substance: RALTEGRAVIR POTASSIUM
  3. RITONAVIR [Suspect]
     Active Substance: RITONAVIR

REACTIONS (1)
  - Death [None]

NARRATIVE: CASE EVENT DATE: 20211014
